FAERS Safety Report 13017598 (Version 3)
Quarter: 2017Q1

REPORT INFORMATION
  Report Type: Spontaneous
  Country: US (occurrence: US)
  Receive Date: 20161212
  Receipt Date: 20170109
  Transmission Date: 20170428
  Serious: Yes (Other)
  Sender: FDA-Public Use
  Company Number: US-PFIZER INC-2016572337

PATIENT
  Sex: Female

DRUGS (1)
  1. NORVASC [Suspect]
     Active Substance: AMLODIPINE BESYLATE
     Indication: HYPERTENSION
     Dosage: 1 DF, DAILY
     Route: 048

REACTIONS (5)
  - Poor quality drug administered [Unknown]
  - Tongue discomfort [Unknown]
  - Dyspnoea [Unknown]
  - Product quality issue [Unknown]
  - Swollen tongue [Unknown]

NARRATIVE: CASE EVENT DATE: 20161123
